FAERS Safety Report 7861630-8 (Version None)
Quarter: 2011Q4

REPORT INFORMATION
  Report Type: 
  Country: None (occurrence: None)
  Receive Date: 20111027
  Receipt Date: 20111017
  Transmission Date: 20120403
  Serious: Yes (Other)
  Sender: FDA-Public Use
  Company Number: PHHY2011GB91321

PATIENT
  Sex: Female

DRUGS (2)
  1. MULTIPLE DRUGS [Concomitant]
  2. RAMIPRIL [Suspect]

REACTIONS (1)
  - LARGE INTESTINAL ULCER [None]
